FAERS Safety Report 5019563-0 (Version None)
Quarter: 2006Q2

REPORT INFORMATION
  Report Type: 
  Country: None (occurrence: None)
  Receive Date: 20060601
  Receipt Date: 20060519
  Transmission Date: 20061013
  Serious: Yes (Hospitalization)
  Sender: FDA-Public Use
  Company Number: 2006-143039-NL

PATIENT
  Age: 38 Year
  Sex: Female
  Weight: 85.3 kg

DRUGS (3)
  1. NUVARING [Suspect]
     Indication: MENSTRUATION IRREGULAR
     Dosage: VAGINAL, 3 WEEKS IN, 1 WEEK OUT
     Route: 067
     Dates: start: 20060315
  2. MOTRIN [Concomitant]
  3. LEVAQUIN [Concomitant]

REACTIONS (1)
  - HEART RATE INCREASED [None]
